FAERS Safety Report 10863642 (Version 2)
Quarter: 2015Q2

REPORT INFORMATION
  Report Type: Report from Study
  Country: US (occurrence: US)
  Receive Date: 20150223
  Receipt Date: 20150421
  Transmission Date: 20150821
  Serious: Yes (Hospitalization)
  Sender: FDA-Public Use
  Company Number: PHEH2015US002749

PATIENT
  Age: 60 Year
  Sex: Female
  Weight: 85 kg

DRUGS (3)
  1. GILENYA [Suspect]
     Active Substance: FINGOLIMOD HYDROCHLORIDE
     Indication: MULTIPLE SCLEROSIS
     Dosage: 0.5 MG, QD
     Route: 048
     Dates: start: 20140501
  2. GILENYA [Suspect]
     Active Substance: FINGOLIMOD HYDROCHLORIDE
     Dosage: 0.5 MG, QD
     Route: 048
     Dates: start: 20140515, end: 20150219
  3. CYMBALTA [Concomitant]
     Active Substance: DULOXETINE HYDROCHLORIDE
     Indication: PRODUCT USED FOR UNKNOWN INDICATION
     Dosage: 60 MG, QD
     Route: 048

REACTIONS (11)
  - Confusional state [Recovered/Resolved]
  - Protein urine present [Unknown]
  - Weight decreased [Unknown]
  - Blood immunoglobulin G increased [Unknown]
  - Urinary tract infection [Unknown]
  - Mental status changes [Recovered/Resolved]
  - Mental status changes [Recovered/Resolved]
  - Confusional state [Unknown]
  - Mental impairment [Unknown]
  - Incoherent [Unknown]
  - Pain in extremity [Unknown]

NARRATIVE: CASE EVENT DATE: 201409
